FAERS Safety Report 5422075-3 (Version None)
Quarter: 2007Q3

REPORT INFORMATION
  Report Type: 
  Country: None (occurrence: None)
  Receive Date: 20070820
  Receipt Date: 20070802
  Transmission Date: 20080115
  Serious: Yes (Hospitalization)
  Sender: FDA-Public Use
  Company Number: 2007BI016340

PATIENT
  Age: 49 Year
  Sex: Female
  Weight: 80 kg

DRUGS (4)
  1. AVONEX [Suspect]
     Indication: MULTIPLE SCLEROSIS
     Dosage: 30 UG;QW;IM
     Route: 030
     Dates: start: 20061101
  2. ENABETA [Concomitant]
  3. BISOPROLOL [Concomitant]
  4. IODINE [Concomitant]

REACTIONS (3)
  - CHILLS [None]
  - HEADACHE [None]
  - HYPOTONIA [None]
